FAERS Safety Report 10233661 (Version 1)
Quarter: 2014Q2

REPORT INFORMATION
  Report Type: Spontaneous
  Country: IN (occurrence: IN)
  Receive Date: 20140612
  Receipt Date: 20140612
  Transmission Date: 20141212
  Serious: Yes (Other)
  Sender: FDA-Public Use
  Company Number: IN-ACTAVIS-2014-13051

PATIENT
  Age: 27 Year
  Sex: Female

DRUGS (1)
  1. CLOTRIMAZOLE (UNKNOWN) [Suspect]
     Indication: ORAL CANDIDIASIS
     Dosage: UNK, 1% WEIGHT/VOLUME
     Route: 061

REACTIONS (6)
  - Stevens-Johnson syndrome [Recovering/Resolving]
  - Drug hypersensitivity [Recovering/Resolving]
  - Erythema multiforme [Recovering/Resolving]
  - Tongue ulceration [Recovering/Resolving]
  - Tongue exfoliation [Recovering/Resolving]
  - Tongue necrosis [Recovering/Resolving]
